FAERS Safety Report 25527863 (Version 1)
Quarter: 2025Q3

REPORT INFORMATION
  Report Type: Spontaneous
  Country: US (occurrence: US)
  Receive Date: 20250708
  Receipt Date: 20250708
  Transmission Date: 20251021
  Serious: Yes (Disabling, Other)
  Sender: ORGANON
  Company Number: US-ORGANON-O2507USA000319

PATIENT
  Sex: Female

DRUGS (2)
  1. NEXPLANON [Suspect]
     Active Substance: ETONOGESTREL
     Route: 065
     Dates: start: 20221111
  2. NEXPLANON [Concomitant]
     Active Substance: ETONOGESTREL
     Route: 059
     Dates: start: 2018

REACTIONS (8)
  - Ovarian cyst [Recovered/Resolved]
  - Ovarian cyst [Unknown]
  - Muscle spasms [Unknown]
  - Pain in extremity [Unknown]
  - Nausea [Unknown]
  - Device implantation error [Recovered/Resolved]
  - Device issue [Recovered/Resolved]
  - Device deployment issue [Recovered/Resolved]

NARRATIVE: CASE EVENT DATE: 20221111
